FAERS Safety Report 11784133 (Version 2)
Quarter: 2015Q4

REPORT INFORMATION
  Report Type: Report from Study
  Country: US (occurrence: US)
  Receive Date: 20151128
  Receipt Date: 20151204
  Transmission Date: 20160305
  Serious: No
  Sender: FDA-Public Use
  Company Number: PHEH2015US024716

PATIENT
  Age: 24 Year
  Sex: Female

DRUGS (1)
  1. AFINITOR [Suspect]
     Active Substance: EVEROLIMUS
     Indication: ANGIOMYOLIPOMA
     Dosage: 7.5 MG, QD
     Route: 048
     Dates: start: 20151030, end: 20151102

REACTIONS (1)
  - Headache [Unknown]

NARRATIVE: CASE EVENT DATE: 20151102
